FAERS Safety Report 8561063-5 (Version None)
Quarter: 2012Q3

REPORT INFORMATION
  Report Type: 
  Country: None (occurrence: None)
  Receive Date: 20120802
  Receipt Date: 20120112
  Transmission Date: 20120928
  Serious: No
  Sender: FDA-Public Use
  Company Number: US-BRISTOL-MYERS SQUIBB COMPANY-16347650

PATIENT
  Age: 49 Year
  Sex: Female
  Weight: 93 kg

DRUGS (3)
  1. MOBIC [Suspect]
  2. REYATAZ [Suspect]
  3. IBUPROFEN [Suspect]

REACTIONS (5)
  - HIATUS HERNIA [None]
  - PALPITATIONS [None]
  - RHEUMATOID ARTHRITIS [None]
  - FIBROMYALGIA [None]
  - GASTROOESOPHAGEAL REFLUX DISEASE [None]
